FAERS Safety Report 16298915 (Version 1)
Quarter: 2019Q2

REPORT INFORMATION
  Report Type: Spontaneous
  Country: US (occurrence: US)
  Receive Date: 20190510
  Receipt Date: 20190510
  Transmission Date: 20190711
  Serious: No
  Sender: FDA-Public Use
  Company Number: US-ALKERMES INC.-ALK-2018-006188

PATIENT
  Age: 62 Year
  Sex: Male
  Weight: 86.17 kg

DRUGS (4)
  1. IBUPROFEN. [Concomitant]
     Active Substance: IBUPROFEN
     Indication: LIMB INJURY
  2. VIVITROL [Suspect]
     Active Substance: NALTREXONE
     Indication: ALCOHOLISM
     Dosage: 380 MG, QMO
     Route: 030
     Dates: start: 20180823
  3. OTHER THERAPEUTIC PRODUCTS [Concomitant]
     Active Substance: UNSPECIFIED INGREDIENT
     Indication: DIABETES MELLITUS
     Dosage: 10 UNIT, QHS
  4. TYLENOL [Concomitant]
     Active Substance: ACETAMINOPHEN
     Indication: LIMB INJURY

REACTIONS (6)
  - Hepatic steatosis [Not Recovered/Not Resolved]
  - Hernia [Not Recovered/Not Resolved]
  - Hiccups [Recovered/Resolved]
  - Cholelithiasis [Not Recovered/Not Resolved]
  - Alcohol use [Recovered/Resolved]
  - Nephrolithiasis [Not Recovered/Not Resolved]

NARRATIVE: CASE EVENT DATE: 20181030
